FAERS Safety Report 4264482-0 (Version None)
Quarter: 2004Q1

REPORT INFORMATION
  Report Type: 
  Country: None (occurrence: None)
  Receive Date: 20040106
  Receipt Date: 20040106
  Transmission Date: 20041129
  Serious: Yes (Life-Threatening)
  Sender: FDA-Public Use
  Company Number: None

PATIENT
  Sex: Female
  Weight: 50 kg

DRUGS (3)
  1. DROTRECOGIN 20 MG [Suspect]
     Indication: SEPSIS
     Dosage: 1200 MCG HOUR INTRAVENOUS
     Route: 042
     Dates: start: 20031226, end: 20031228
  2. ENOXAPARIN SODIUM [Concomitant]
  3. CLOPIDOGREL [Concomitant]

REACTIONS (1)
  - MOUTH HAEMORRHAGE [None]
